FAERS Safety Report 4397137-2 (Version None)
Quarter: 2004Q3

REPORT INFORMATION
  Report Type: 
  Country: None (occurrence: None)
  Receive Date: 20040708
  Receipt Date: 20040625
  Transmission Date: 20050211
  Serious: Yes (Other)
  Sender: FDA-Public Use
  Company Number: 2004033713

PATIENT
  Age: 40 Year
  Sex: Male
  Weight: 70 kg

DRUGS (7)
  1. MAGNEX (CEFOPERAZONE, SULBACTAM) [Suspect]
     Indication: ILL-DEFINED DISORDER
     Dosage: 2 GRAM (1 GRAM, 2 IN 1 D), INTRAVENOUS
     Route: 042
     Dates: start: 20040511, end: 20040512
  2. METRONIDAZOLE [Suspect]
     Indication: ILL-DEFINED DISORDER
     Dosage: 3 IN 1 D, INTRAVENOUS
     Route: 042
     Dates: start: 20040505
  3. CEFEPIME (CEFEPIME) [Concomitant]
  4. AMIKACIN [Concomitant]
  5. TRAMADOL HCL [Concomitant]
  6. RANITIDINE HYDROCHLORIDE [Concomitant]
  7. BLOOD AND RELATED PRODUCTS (BLOOD AND RELATED PRODUCTS) [Concomitant]

REACTIONS (2)
  - HAEMOGLOBIN DECREASED [None]
  - JAUNDICE [None]
